FAERS Safety Report 17859552 (Version 1)
Quarter: 2020Q2

REPORT INFORMATION
  Report Type: Spontaneous
  Country: PL (occurrence: PL)
  Receive Date: 20200604
  Receipt Date: 20200604
  Transmission Date: 20200714
  Serious: Yes (Hospitalization)
  Sender: FDA-Public Use
  Company Number: NVSC2020PL154842

PATIENT
  Age: 32 Year
  Sex: Male
  Weight: 68 kg

DRUGS (1)
  1. AMOKSIKLAV [Suspect]
     Active Substance: AMOXICILLIN\CLAVULANATE POTASSIUM
     Indication: MENINGITIS VIRAL
     Dosage: 1 DF
     Route: 048
     Dates: start: 20170525, end: 20170525

REACTIONS (2)
  - Dermatitis allergic [Recovered/Resolved]
  - Pruritus [Recovered/Resolved]
